FAERS Safety Report 8250565-7 (Version None)
Quarter: 2012Q2

REPORT INFORMATION
  Report Type: 
  Country: None (occurrence: None)
  Receive Date: 20120402
  Receipt Date: 20120402
  Transmission Date: 20120825
  Serious: Yes (Hospitalization)
  Sender: FDA-Public Use
  Company Number: None

PATIENT
  Age: 41 Year
  Sex: Female
  Weight: 83.914 kg

DRUGS (1)
  1. FENTANYL [Suspect]
     Indication: PAIN
     Dosage: 25 MCG/HR
     Route: 062
     Dates: start: 20120322, end: 20120401

REACTIONS (9)
  - HALLUCINATION [None]
  - PRODUCT ADHESION ISSUE [None]
  - DRUG WITHDRAWAL SYNDROME [None]
  - MUSCULOSKELETAL DISORDER [None]
  - TREATMENT FAILURE [None]
  - PRODUCT QUALITY ISSUE [None]
  - PAIN [None]
  - CONDITION AGGRAVATED [None]
  - DIZZINESS [None]
